FAERS Safety Report 13156193 (Version 1)
Quarter: 2017Q1

REPORT INFORMATION
  Report Type: Spontaneous
  Country: US (occurrence: US)
  Receive Date: 20170126
  Receipt Date: 20170126
  Transmission Date: 20170428
  Serious: Yes (Other)
  Sender: FDA-Public Use
  Company Number: US-AMGEN-USASP2017010337

PATIENT
  Age: 60 Year
  Sex: Female

DRUGS (1)
  1. ENBREL [Suspect]
     Active Substance: ETANERCEPT
     Indication: PSORIATIC ARTHROPATHY
     Dosage: 50 MG, QWK
     Route: 058

REACTIONS (5)
  - Impaired healing [Recovering/Resolving]
  - Road traffic accident [Unknown]
  - Contusion [Recovering/Resolving]
  - Psoriatic arthropathy [Unknown]
  - Cellulitis [Unknown]

NARRATIVE: CASE EVENT DATE: 201701
